FAERS Safety Report 18179122 (Version 2)
Quarter: 2022Q1

REPORT INFORMATION
  Report Type: Spontaneous
  Country: US (occurrence: US)
  Receive Date: 20200820
  Receipt Date: 20220324
  Transmission Date: 20220423
  Serious: No
  Sender: FDA-Public Use
  Company Number: US-NOVARTISTESTPH-NVSC2020US229788

PATIENT
  Sex: Female

DRUGS (1)
  1. VIVELLE-DOT [Suspect]
     Active Substance: ESTRADIOL
     Indication: Product used for unknown indication
     Dosage: UNK, APPROXIMATELY 10 YEARS
     Route: 065

REACTIONS (4)
  - Product adhesion issue [Unknown]
  - Hot flush [Unknown]
  - Headache [Unknown]
  - Migraine [Unknown]
